FAERS Safety Report 7718357-2 (Version None)
Quarter: 2011Q3

REPORT INFORMATION
  Report Type: 
  Country: None (occurrence: None)
  Receive Date: 20110830
  Receipt Date: 20110824
  Transmission Date: 20111222
  Serious: Yes (Hospitalization, Other)
  Sender: FDA-Public Use
  Company Number: PHHY2011JP24150

PATIENT
  Sex: Female

DRUGS (7)
  1. TOREMIFENE [Concomitant]
     Indication: BREAST CANCER
     Dosage: 120 MG, UNK
     Dates: start: 20050913, end: 20051015
  2. FURTULON [Concomitant]
     Indication: BREAST CANCER
     Dosage: 800 MG, UNK
     Dates: start: 20051016
  3. ARIMIDEX [Concomitant]
     Indication: BREAST CANCER
     Dosage: 1 MG, UNK
     Route: 048
     Dates: start: 20040618, end: 20050912
  4. AREDIA [Suspect]
     Indication: METASTASES TO BONE
     Dosage: 90 MG, UNK
     Dates: start: 20040924, end: 20060919
  5. MEDROXYPROGESTERONE ACETATE [Concomitant]
     Indication: BREAST CANCER
     Dosage: 800 MG, UNK
     Dates: start: 20051016
  6. ZOMETA [Suspect]
     Indication: METASTASES TO BONE
     Dosage: 4 MG, QMO
     Dates: start: 20061017, end: 20090911
  7. CYCLOPHOSPHAMIDE [Concomitant]
     Indication: BREAST CANCER
     Dosage: 150 MG, UNK
     Dates: start: 20051016

REACTIONS (4)
  - FEMUR FRACTURE [None]
  - ARTHRALGIA [None]
  - FALL [None]
  - BONE DENSITY DECREASED [None]
